FAERS Safety Report 4786510-6 (Version None)
Quarter: 2005Q3

REPORT INFORMATION
  Report Type: 
  Country: None (occurrence: None)
  Receive Date: 20050914
  Receipt Date: 20050209
  Transmission Date: 20060218
  Serious: Yes (Hospitalization, Other)
  Sender: FDA-Public Use
  Company Number: 163-20785-05020152

PATIENT
  Age: 80 Year
  Sex: Male

DRUGS (4)
  1. THALOMID [Suspect]
     Indication: MULTIPLE MYELOMA
     Dosage: 100 MG, QHS, ORAL
     Route: 048
     Dates: start: 20040521
  2. FLUTAMIDE [Concomitant]
  3. DECADRON [Concomitant]
  4. ZOMETA [Concomitant]

REACTIONS (1)
  - DEEP VEIN THROMBOSIS [None]
